FAERS Safety Report 4849759-X (Version None)
Quarter: 2005Q4

REPORT INFORMATION
  Report Type: 
  Country: None (occurrence: None)
  Receive Date: 20051109
  Receipt Date: 20041015
  Transmission Date: 20060501
  Serious: Yes (Hospitalization)
  Sender: FDA-Public Use
  Company Number: DSA_70494_2004

PATIENT
  Age: 69 Year
  Sex: Male

DRUGS (3)
  1. DURACLON [Suspect]
     Indication: PAIN
     Dosage: DF
  2. BACLOFEN [Suspect]
     Dosage: DF
  3. ZICONOTIDE [Suspect]
     Indication: PAIN
     Dosage: DF ONCE IT
     Route: 037
     Dates: start: 20040901, end: 20040902

REACTIONS (1)
  - HYPOTENSION [None]
